FAERS Safety Report 6791542-2 (Version None)
Quarter: 2010Q2

REPORT INFORMATION
  Report Type: 
  Country: None (occurrence: None)
  Receive Date: 20100624
  Receipt Date: 20090618
  Transmission Date: 20101027
  Serious: Yes (Other)
  Sender: FDA-Public Use
  Company Number: US-PFIZER INC-2008058152

PATIENT
  Sex: Female
  Weight: 45 kg

DRUGS (9)
  1. PROVERA [Suspect]
     Indication: HORMONE REPLACEMENT THERAPY
     Dosage: 10MG, 5 MG
     Route: 048
     Dates: start: 19840101, end: 19980101
  2. PREMARIN [Suspect]
     Indication: HORMONE REPLACEMENT THERAPY
     Dosage: 0.9MG, 0.625MG
     Dates: start: 19840101, end: 19980101
  3. XANAX [Concomitant]
     Indication: ANXIETY
     Dosage: UNK
     Dates: start: 20000101, end: 20060101
  4. CARDIZEM [Concomitant]
     Indication: HYPERTENSION
     Dosage: UNK
     Dates: start: 20000101, end: 20060101
  5. ZANTAC [Concomitant]
     Indication: NAUSEA
     Dosage: UNK
     Dates: start: 20000101, end: 20060101
  6. PERCOCET [Concomitant]
     Indication: PAIN
     Dosage: UNK
     Dates: start: 20010101, end: 20060101
  7. SEPTRA [Concomitant]
     Indication: URINARY TRACT INFECTION
     Dosage: UNK
     Dates: start: 20010101, end: 20010101
  8. RANITIDINE [Concomitant]
     Indication: ULCER
     Dosage: UNK
     Dates: start: 20010101
  9. CIPROFLOXACIN [Concomitant]
     Indication: ANTIBIOTIC THERAPY
     Dosage: UNK
     Dates: start: 20010101

REACTIONS (1)
  - BREAST CANCER FEMALE [None]
